FAERS Safety Report 10256834 (Version 2)
Quarter: 2014Q2

REPORT INFORMATION
  Report Type: Report from Study
  Country: IL (occurrence: IL)
  Receive Date: 20140625
  Receipt Date: 20140625
  Transmission Date: 20141212
  Serious: Yes (Hospitalization)
  Sender: FDA-Public Use
  Company Number: IL-ROCHE-1416418

PATIENT
  Age: 54 Year
  Sex: Male

DRUGS (8)
  1. PEG-INTERFERON ALFA 2A [Suspect]
     Indication: HEPATITIS C
     Route: 058
     Dates: start: 201311, end: 201403
  2. RIBAVIRIN [Suspect]
     Indication: HEPATITIS C
     Route: 048
     Dates: start: 201311, end: 201403
  3. VICTRELIS [Suspect]
     Indication: HEPATITIS C
     Route: 048
     Dates: start: 201311, end: 201403
  4. ASPIRIN [Concomitant]
     Route: 048
  5. CONCOR [Concomitant]
     Route: 048
  6. ENALADEX [Concomitant]
     Route: 048
  7. PLAVIX [Concomitant]
     Route: 048
  8. SIMOVIL [Concomitant]
     Route: 048

REACTIONS (1)
  - Pancytopenia [Recovered/Resolved]
